FAERS Safety Report 5342263-4 (Version None)
Quarter: 2007Q2

REPORT INFORMATION
  Report Type: 
  Country: None (occurrence: None)
  Receive Date: 20070416
  Receipt Date: 20070306
  Transmission Date: 20071010
  Serious: No
  Sender: FDA-Public Use
  Company Number: 2007SP000799

PATIENT
  Age: 84 Year
  Sex: Male
  Weight: 95.2554 kg

DRUGS (7)
  1. LUNESTA [Suspect]
     Indication: INSOMNIA
     Dosage: 1 MG;HS;ORAL
     Route: 048
     Dates: start: 20070201, end: 20070301
  2. TYLENOL [Suspect]
     Indication: INSOMNIA
     Dosage: HS;ORAL
     Route: 048
  3. PROCARDIA XL [Concomitant]
  4. LASIX [Concomitant]
  5. TAPAZOL [Concomitant]
  6. ASPIRIN [Concomitant]
  7. VITAMIN CAP [Concomitant]

REACTIONS (2)
  - DRUG INEFFECTIVE [None]
  - INSOMNIA [None]
